FAERS Safety Report 4896931-9 (Version None)
Quarter: 2006Q1

REPORT INFORMATION
  Report Type: 
  Country: None (occurrence: None)
  Receive Date: 20060127
  Receipt Date: 20060116
  Transmission Date: 20060701
  Serious: Yes (Death, Hospitalization)
  Sender: FDA-Public Use
  Company Number: 2005111286

PATIENT
  Age: 82 Year
  Sex: Male

DRUGS (5)
  1. ATORVASTATIN CALCIUM [Suspect]
     Indication: LIPIDS INCREASED
     Dosage: 80 MG, ORAL
     Route: 048
     Dates: start: 20050301, end: 20050701
  2. LANSOPRAZOLE [Concomitant]
  3. CLOPIDOGREL BISULFATE [Concomitant]
  4. BISOPROLOL (BISOPROLOL) [Concomitant]
  5. ISOSORBIDE MONONITRATE [Concomitant]

REACTIONS (16)
  - ACIDOSIS [None]
  - ANOREXIA [None]
  - ASTHENIA [None]
  - BACK INJURY [None]
  - DYSSTASIA [None]
  - FALL [None]
  - GENERAL PHYSICAL HEALTH DETERIORATION [None]
  - IMMOBILE [None]
  - JAUNDICE [None]
  - JOINT INJURY [None]
  - LIVER FUNCTION TEST ABNORMAL [None]
  - MALAISE [None]
  - RENAL FAILURE ACUTE [None]
  - RHABDOMYOLYSIS [None]
  - SPINAL COMPRESSION FRACTURE [None]
  - WEIGHT DECREASED [None]
